FAERS Safety Report 7764809 (Version 2)
Quarter: 2014Q1

REPORT INFORMATION
  Report Type: Spontaneous
  Country: US (occurrence: US)
  Receive Date: 20110119
  Receipt Date: 20140321
  Transmission Date: 20141002
  Serious: Yes (Hospitalization, Other)
  Sender: FDA-Public Use
  Company Number: US-BAYER-201037548NA

PATIENT
  Age: 40 Year
  Sex: Female
  Weight: 133 kg

DRUGS (20)
  1. YAZ [Suspect]
     Indication: PRODUCT USED FOR UNKNOWN INDICATION
     Dosage: UNK
  2. YASMIN [Suspect]
     Indication: PRODUCT USED FOR UNKNOWN INDICATION
     Dosage: UNK
     Dates: start: 2007, end: 2009
  3. OCELLA [Suspect]
     Indication: PRODUCT USED FOR UNKNOWN INDICATION
     Dosage: UNK
     Dates: start: 2007, end: 2009
  4. IBUPROFEN [Concomitant]
     Indication: PANCREATITIS
  5. MVI [Concomitant]
     Indication: PANCREATITIS
  6. PROTONIX [Concomitant]
     Indication: PANCREATITIS
  7. ZYRTEC [Concomitant]
  8. I.V. SOLUTIONS [Concomitant]
     Route: 042
  9. DILAUDID [Concomitant]
  10. ZOFRAN [Concomitant]
  11. LEVAQUIN [Concomitant]
  12. ZOLOFT [Concomitant]
  13. CARDURA [Concomitant]
  14. VICODIN [Concomitant]
  15. PREDNISONE [Concomitant]
     Dosage: 20 MG, 3 TABLETS FOR 3 DAYS
     Route: 048
     Dates: start: 20090817
  16. CYCLOBENZAPRINE [Concomitant]
     Dosage: 10 MG, UNK
     Route: 048
     Dates: start: 20090817
  17. ALPRAZOLAM [Concomitant]
     Dosage: 0.25 MG, UNK
     Route: 048
     Dates: start: 20090316, end: 20090914
  18. METRONIDAZOLE [Concomitant]
     Dosage: 0.75 %, UNK
     Route: 067
     Dates: start: 20090923
  19. MISOPROSTOL [Concomitant]
     Dosage: 200 MG, UNK
     Route: 067
     Dates: start: 20091018
  20. TRICOR [Concomitant]
     Dosage: UNK
     Dates: start: 20080309, end: 20080510

REACTIONS (8)
  - Gallbladder disorder [None]
  - Cholecystitis chronic [None]
  - Nephrolithiasis [None]
  - Pyelonephritis acute [None]
  - Flank pain [None]
  - Nausea [None]
  - Vomiting [None]
  - Chromaturia [None]
